FAERS Safety Report 18990296 (Version 1)
Quarter: 2021Q1

REPORT INFORMATION
  Report Type: Report from Study
  Country: BR (occurrence: BR)
  Receive Date: 20210310
  Receipt Date: 20210310
  Transmission Date: 20210420
  Serious: Yes (Other)
  Sender: FDA-Public Use
  Company Number: BR-BRISTOL-MYERS SQUIBB COMPANY-BMS-2015-062380

PATIENT
  Sex: Male
  Weight: 70 kg

DRUGS (8)
  1. APIXABAN [Suspect]
     Active Substance: APIXABAN
     Indication: CEREBROVASCULAR ACCIDENT PROPHYLAXIS
     Dosage: UNK
     Route: 048
     Dates: start: 2015, end: 2016
  2. LOSARTAN. [Concomitant]
     Active Substance: LOSARTAN
     Indication: BLOOD PRESSURE MEASUREMENT
     Dosage: 1 TAB, QD
     Route: 065
  3. PURAN [Concomitant]
     Active Substance: LEVOTHYROXINE SODIUM
     Indication: THYROID DISORDER
     Dosage: 1 TAB, QD
     Route: 065
  4. CARVEDILOL. [Concomitant]
     Active Substance: CARVEDILOL
     Indication: CARDIAC DISORDER
     Dosage: 2 TAB, QD
     Route: 065
  5. AMIODARONE HYDROCHLORIDE. [Concomitant]
     Active Substance: AMIODARONE HYDROCHLORIDE
     Indication: CARDIAC DISORDER
     Dosage: 1 TAB, QD
     Route: 065
  6. RIVOTRIL [Concomitant]
     Active Substance: CLONAZEPAM
     Indication: DEPRESSION
     Dosage: 1 TAB, QD
     Route: 065
  7. ATORVASTATIN CALCIUM. [Concomitant]
     Active Substance: ATORVASTATIN CALCIUM
     Indication: BLOOD CHOLESTEROL
     Dosage: 1 TAB, QD
     Route: 065
  8. FLUOXETINE [Concomitant]
     Active Substance: FLUOXETINE HYDROCHLORIDE
     Indication: DEPRESSION
     Dosage: 1 TAB, QD
     Route: 065

REACTIONS (2)
  - Arrhythmia [Unknown]
  - Haemorrhage [Unknown]
